FAERS Safety Report 13597644 (Version 2)
Quarter: 2017Q2

REPORT INFORMATION
  Report Type: Spontaneous
  Country: FR (occurrence: FR)
  Receive Date: 20170531
  Receipt Date: 20170616
  Transmission Date: 20170830
  Serious: Yes (Life-Threatening, Hospitalization)
  Sender: FDA-Public Use
  Company Number: FR-TEVA-771796ROM

PATIENT
  Age: 55 Year
  Sex: Female

DRUGS (7)
  1. TEGRETOL [Suspect]
     Active Substance: CARBAMAZEPINE
     Indication: TRIGEMINAL NEURALGIA
     Dosage: 600 MILLIGRAM DAILY; FORM: PROLONGED-RELEASE FILM-COATED TABLET
     Route: 048
     Dates: end: 20170420
  2. ALPRAZOLAM. [Concomitant]
     Active Substance: ALPRAZOLAM
     Indication: ANXIETY
     Dosage: .25 MILLIGRAM DAILY;
     Route: 048
     Dates: end: 20170425
  3. LYRICA [Concomitant]
     Active Substance: PREGABALIN
     Indication: NEURALGIA
     Dosage: 100 MILLIGRAM DAILY;
     Route: 048
  4. COPAXONE [Suspect]
     Active Substance: GLATIRAMER ACETATE
     Indication: MULTIPLE SCLEROSIS
     Dosage: 20 MILLIGRAM/MILLILITERS DAILY;
     Route: 058
     Dates: start: 20050101, end: 20170425
  5. LAROXYL 40 MG/ML [Concomitant]
     Active Substance: AMITRIPTYLINE HYDROCHLORIDE
     Indication: INSOMNIA
     Dosage: 15 GTT DAILY;
     Route: 048
     Dates: end: 20170425
  6. TEGRETOL [Suspect]
     Active Substance: CARBAMAZEPINE
     Dosage: 800 MILLIGRAM DAILY; FORM: PROLONGED-RELEASE FILM-COATED TABLET
     Route: 048
     Dates: start: 20170421, end: 20170425
  7. LIORESAL 10 MG [Concomitant]
     Indication: MUSCLE SPASTICITY
     Dosage: 30 MILLIGRAM DAILY;
     Route: 048

REACTIONS (2)
  - Stupor [Recovering/Resolving]
  - Hypothermia [Recovered/Resolved]

NARRATIVE: CASE EVENT DATE: 20170425
